FAERS Safety Report 12948399 (Version 1)
Quarter: 2016Q4

REPORT INFORMATION
  Report Type: Spontaneous
  Country: US (occurrence: US)
  Receive Date: 20161116
  Receipt Date: 20161116
  Transmission Date: 20170207
  Serious: No
  Sender: FDA-Public Use
  Company Number: US-BAUSCH-BL-2016-019869

PATIENT
  Age: 50 Year
  Sex: Male
  Weight: 65.83 kg

DRUGS (2)
  1. LOTEMAX [Suspect]
     Active Substance: LOTEPREDNOL ETABONATE
     Dosage: TWO DROPS IN RIGHT EYE
     Route: 047
     Dates: start: 20160815
  2. LOTEMAX [Suspect]
     Active Substance: LOTEPREDNOL ETABONATE
     Indication: EYE ALLERGY
     Dosage: TWO DROPS IN RIGHT EYE
     Route: 047
     Dates: start: 20160809, end: 20160814

REACTIONS (4)
  - Off label use [Unknown]
  - Diarrhoea [Not Recovered/Not Resolved]
  - Pyrexia [Recovered/Resolved]
  - Gastroenteritis viral [Recovered/Resolved]

NARRATIVE: CASE EVENT DATE: 201608
